FAERS Safety Report 23529868 (Version 1)
Quarter: 2024Q1

REPORT INFORMATION
  Report Type: Spontaneous
  Country: US (occurrence: US)
  Receive Date: 20240216
  Receipt Date: 20240216
  Transmission Date: 20240410
  Serious: No
  Sender: FDA-Public Use
  Company Number: US-OTSUKA-2023_031679

PATIENT
  Age: 4 Year
  Sex: Female

DRUGS (30)
  1. BUSULFAN [Suspect]
     Active Substance: BUSULFAN
     Indication: Myelodysplastic syndrome
     Dosage: UNK
     Route: 065
  2. BUSULFAN [Suspect]
     Active Substance: BUSULFAN
     Indication: Stem cell transplant
  3. BUSULFAN [Suspect]
     Active Substance: BUSULFAN
     Indication: Bone marrow conditioning regimen
  4. DECITABINE [Suspect]
     Active Substance: DECITABINE
     Indication: Myelodysplastic syndrome
     Dosage: 20 MG/M2 (FOR 10 DAYS)
     Route: 065
  5. DECITABINE [Suspect]
     Active Substance: DECITABINE
     Indication: Stem cell transplant
  6. DECITABINE [Suspect]
     Active Substance: DECITABINE
     Indication: Bone marrow conditioning regimen
  7. CYCLOPHOSPHAMIDE [Suspect]
     Active Substance: CYCLOPHOSPHAMIDE
     Indication: Myelodysplastic syndrome
     Dosage: UNK
     Route: 065
  8. CYCLOPHOSPHAMIDE [Suspect]
     Active Substance: CYCLOPHOSPHAMIDE
     Indication: Bone marrow conditioning regimen
  9. CYCLOPHOSPHAMIDE [Suspect]
     Active Substance: CYCLOPHOSPHAMIDE
     Indication: Stem cell transplant
  10. CYCLOSPORINE [Suspect]
     Active Substance: CYCLOSPORINE
     Indication: Myelodysplastic syndrome
     Dosage: UNK
     Route: 065
  11. CYCLOSPORINE [Suspect]
     Active Substance: CYCLOSPORINE
     Indication: Stem cell transplant
  12. CYCLOSPORINE [Suspect]
     Active Substance: CYCLOSPORINE
     Indication: Bone marrow conditioning regimen
  13. AZACITIDINE [Suspect]
     Active Substance: AZACITIDINE
     Indication: Myelodysplastic syndrome
     Dosage: 75 MG/M2 (FOR 7 DAYS, 28 DAYS CYCLE)
     Route: 065
  14. AZACITIDINE [Suspect]
     Active Substance: AZACITIDINE
     Indication: Stem cell transplant
  15. AZACITIDINE [Suspect]
     Active Substance: AZACITIDINE
     Indication: Bone marrow conditioning regimen
  16. FLUDARABINE [Suspect]
     Active Substance: FLUDARABINE PHOSPHATE
     Indication: Myelodysplastic syndrome
     Dosage: UNK
     Route: 065
  17. FLUDARABINE [Suspect]
     Active Substance: FLUDARABINE PHOSPHATE
     Indication: Stem cell transplant
  18. FLUDARABINE [Suspect]
     Active Substance: FLUDARABINE PHOSPHATE
     Indication: Bone marrow conditioning regimen
  19. CYTARABINE [Suspect]
     Active Substance: CYTARABINE
     Indication: Myelodysplastic syndrome
     Dosage: 1000 MG/M2 (EVERY 12 HOURS FOR 5 DAYS)
     Route: 042
  20. CYTARABINE [Suspect]
     Active Substance: CYTARABINE
     Indication: Stem cell transplant
  21. CYTARABINE [Suspect]
     Active Substance: CYTARABINE
     Indication: Bone marrow conditioning regimen
  22. GRANULOCYTES [Suspect]
     Active Substance: GRANULOCYTES
     Indication: Myelodysplastic syndrome
     Dosage: UNK
     Route: 065
  23. GRANULOCYTES [Suspect]
     Active Substance: GRANULOCYTES
     Indication: Stem cell transplant
  24. GRANULOCYTES [Suspect]
     Active Substance: GRANULOCYTES
     Indication: Bone marrow conditioning regimen
  25. VENETOCLAX [Suspect]
     Active Substance: VENETOCLAX
     Indication: Myelodysplastic syndrome
     Dosage: 14 MG/KG (800 MG ADULT EQUIVALENT)
     Route: 065
  26. VENETOCLAX [Suspect]
     Active Substance: VENETOCLAX
     Indication: Stem cell transplant
  27. VENETOCLAX [Suspect]
     Active Substance: VENETOCLAX
     Indication: Bone marrow conditioning regimen
  28. CLOFARABINE [Suspect]
     Active Substance: CLOFARABINE
     Indication: Myelodysplastic syndrome
     Dosage: UNK
     Route: 065
  29. CLOFARABINE [Suspect]
     Active Substance: CLOFARABINE
     Indication: Stem cell transplant
  30. CLOFARABINE [Suspect]
     Active Substance: CLOFARABINE
     Indication: Bone marrow conditioning regimen

REACTIONS (2)
  - Transplantation complication [Unknown]
  - Product use in unapproved indication [Unknown]
